FAERS Safety Report 10214149 (Version 2)
Quarter: 2014Q2

REPORT INFORMATION
  Report Type: Spontaneous
  Country: US (occurrence: US)
  Receive Date: 20140603
  Receipt Date: 20140630
  Transmission Date: 20141212
  Serious: No
  Sender: FDA-Public Use
  Company Number: US-ROXANE LABORATORIES, INC.-2014-RO-00848RO

PATIENT
  Age: 72 Year
  Sex: Male

DRUGS (1)
  1. NARATRIPTAN HYDROCHLORIDE [Suspect]
     Indication: CLUSTER HEADACHE
     Route: 048
     Dates: start: 2013

REACTIONS (2)
  - Drug ineffective for unapproved indication [Unknown]
  - Product quality issue [Unknown]
